FAERS Safety Report 8183980-0 (Version None)
Quarter: 2012Q1

REPORT INFORMATION
  Report Type: 
  Country: None (occurrence: None)
  Receive Date: 20120305
  Receipt Date: 20120127
  Transmission Date: 20120608
  Serious: Yes (Hospitalization)
  Sender: FDA-Public Use
  Company Number: FR-PFIZER INC-K201000743

PATIENT
  Age: 57 Year
  Sex: Male

DRUGS (6)
  1. BISOPROLOL FUMARATE [Suspect]
     Dosage: 2.5 MG, 2X/DAY
     Route: 048
     Dates: start: 20100201
  2. LEVEMIR [Concomitant]
     Indication: TYPE 2 DIABETES MELLITUS
     Dosage: UNK
     Dates: start: 20060101
  3. ATORVASTATIN [Suspect]
     Dosage: 40 MG, 1X/DAY
     Route: 048
     Dates: start: 20100201
  4. PLAVIX [Suspect]
     Dosage: 75 MG, 1X/DAY
     Route: 048
     Dates: start: 20100201
  5. RAMIPRIL [Suspect]
     Dosage: 2.5 MG, 2X/DAY
     Route: 048
     Dates: start: 20100201
  6. ASPIRIN [Suspect]
     Dosage: 160 MG, 1X/DAY

REACTIONS (3)
  - GYNAECOMASTIA [None]
  - ERECTILE DYSFUNCTION [None]
  - LOSS OF LIBIDO [None]
